FAERS Safety Report 24042498 (Version 1)
Quarter: 2024Q3

REPORT INFORMATION
  Report Type: Spontaneous
  Country: US (occurrence: US)
  Receive Date: 20240702
  Receipt Date: 20240702
  Transmission Date: 20241016
  Serious: No
  Sender: INTRA-CELLULAR THERAPIES
  Company Number: US-INTRA-CELLULAR THERAPIES, INC.-2024ICT00468

PATIENT
  Age: 36 Year
  Sex: Male

DRUGS (3)
  1. CAPLYTA [Suspect]
     Active Substance: LUMATEPERONE
     Indication: Bipolar disorder
     Dosage: 42 MG, 1X/DAY
     Dates: start: 202308
  2. TYLENOL [Suspect]
     Active Substance: ACETAMINOPHEN
     Indication: Back injury
     Dosage: UNK
     Dates: start: 202402, end: 2024
  3. UNSPECIFIED INGREDIENT [Suspect]
     Active Substance: UNSPECIFIED INGREDIENT
     Indication: Back injury
     Dosage: UNK
     Dates: start: 202402, end: 2024

REACTIONS (5)
  - Eye movement disorder [Unknown]
  - Back injury [Unknown]
  - Musculoskeletal stiffness [Unknown]
  - Drug interaction [Recovered/Resolved]
  - Dyskinesia [Unknown]

NARRATIVE: CASE EVENT DATE: 20240201
